FAERS Safety Report 16942227 (Version 1)
Quarter: 2019Q4

REPORT INFORMATION
  Report Type: Spontaneous
  Country: US (occurrence: US)
  Receive Date: 20191021
  Receipt Date: 20191021
  Transmission Date: 20200122
  Serious: No
  Sender: FDA-Public Use
  Company Number: US-SA-2019SA290378

PATIENT

DRUGS (1)
  1. ZANTAC 75 [Suspect]
     Active Substance: RANITIDINE HYDROCHLORIDE
     Dosage: 180 MG, BID

REACTIONS (4)
  - Anxiety [Unknown]
  - Fatigue [Unknown]
  - Depression [Unknown]
  - Incorrect product administration duration [Unknown]
